FAERS Safety Report 6047784-7 (Version None)
Quarter: 2009Q1

REPORT INFORMATION
  Report Type: 
  Country: None (occurrence: None)
  Receive Date: 20090123
  Receipt Date: 20090114
  Transmission Date: 20090719
  Serious: Yes (Other)
  Sender: FDA-Public Use
  Company Number: HU-AMGEN-US308227

PATIENT
  Age: 27 Year
  Sex: Female

DRUGS (1)
  1. ENBREL [Suspect]
     Indication: RHEUMATOID ARTHRITIS
     Route: 058
     Dates: start: 20080301, end: 20080901

REACTIONS (4)
  - ALLERGIC RESPIRATORY SYMPTOM [None]
  - COITAL BLEEDING [None]
  - DYSMENORRHOEA [None]
  - WEIGHT INCREASED [None]
